FAERS Safety Report 15626920 (Version 3)
Quarter: 2018Q4

REPORT INFORMATION
  Report Type: Spontaneous
  Country: JP (occurrence: JP)
  Receive Date: 20181116
  Receipt Date: 20181214
  Transmission Date: 20190205
  Serious: Yes (Death, Other)
  Sender: FDA-Public Use
  Company Number: JP-PFIZER INC-2018473043

PATIENT
  Age: 74 Year
  Sex: Male

DRUGS (21)
  1. HANP [Concomitant]
     Active Substance: CARPERITIDE
     Indication: CARDIAC FAILURE
  2. LIXIANA [Concomitant]
     Active Substance: EDOXABAN TOSYLATE
     Indication: THROMBOSIS PROPHYLAXIS
     Dosage: 60 MG, UNK
     Dates: start: 20181003
  3. DIART [Concomitant]
     Active Substance: AZOSEMIDE
     Dosage: 60 MG, UNK
     Dates: start: 20181004
  4. DIART [Concomitant]
     Active Substance: AZOSEMIDE
     Dosage: 30 MG, UNK
     Route: 048
  5. VASOLAN [ISOXSUPRINE HYDROCHLORIDE] [Concomitant]
     Indication: ATRIAL FIBRILLATION
     Dosage: UNK
     Dates: start: 20181002
  6. ANCARON [Suspect]
     Active Substance: AMIODARONE HYDROCHLORIDE
     Indication: ATRIAL FIBRILLATION
  7. LASIX [Suspect]
     Active Substance: FUROSEMIDE
     Indication: CARDIAC FAILURE
     Dosage: UNK (10 MG/ML)
     Route: 042
     Dates: start: 20181007, end: 2018
  8. ANCARON [Suspect]
     Active Substance: AMIODARONE HYDROCHLORIDE
     Indication: CARDIAC FAILURE
     Dosage: 100 MG, DAILY
     Route: 048
     Dates: start: 20181004, end: 20181009
  9. LASIX [Suspect]
     Active Substance: FUROSEMIDE
     Indication: ATRIAL FIBRILLATION
     Dosage: UNK(10 MG/ML)
     Route: 042
     Dates: start: 20181002, end: 20181004
  10. MAINTATE [Concomitant]
     Active Substance: BISOPROLOL FUMARATE
     Indication: CARDIAC FAILURE
     Dosage: 0.625 MG, UNK
     Dates: start: 20181003
  11. FRANDOL S [Concomitant]
     Active Substance: ISOSORBIDE DINITRATE
     Indication: CARDIOVASCULAR EVENT PROPHYLAXIS
     Dosage: UNK
     Dates: start: 20181003
  12. ALDACTONE A [Concomitant]
     Active Substance: SPIRONOLACTONE
     Indication: CARDIAC FAILURE
     Dosage: 25 MG, UNK
     Dates: start: 20181003
  13. ONOACT [Concomitant]
     Active Substance: LANDIOLOL HYDROCHLORIDE
     Indication: ATRIAL FIBRILLATION
     Dosage: UNK
     Dates: start: 20181013
  14. ADALAT [Concomitant]
     Active Substance: NIFEDIPINE
     Dosage: UNK
  15. ANCARON [Suspect]
     Active Substance: AMIODARONE HYDROCHLORIDE
     Indication: ATRIAL FIBRILLATION
     Dosage: 50 MG/ML
     Route: 041
     Dates: start: 20181013
  16. BISONO [Concomitant]
     Active Substance: BISOPROLOL
     Indication: TACHYCARDIA
     Dosage: 4 MG, UNK
     Dates: start: 20181003
  17. TAKECAB [Concomitant]
     Active Substance: VONOPRAZAN FUMURATE
     Indication: PROPHYLAXIS AGAINST GASTROINTESTINAL ULCER
     Dosage: UNK
     Dates: start: 20181003
  18. SUNRYTHM [Concomitant]
     Active Substance: PILSICAINIDE HYDROCHLORIDE
     Indication: ATRIAL FIBRILLATION
     Dosage: UNK
     Dates: start: 20181002
  19. HANP [Concomitant]
     Active Substance: CARPERITIDE
     Indication: ATRIAL FIBRILLATION
     Dosage: UNK
     Dates: start: 20181002
  20. NU-LOTAN [Concomitant]
     Active Substance: LOSARTAN POTASSIUM
     Indication: CARDIAC FAILURE
     Dosage: 25 MG, UNK
     Dates: start: 20181003, end: 20181007
  21. LOWGAN [Concomitant]
     Dosage: UNK

REACTIONS (21)
  - Lung neoplasm malignant [Fatal]
  - Metastases to pleura [Unknown]
  - Pleural effusion [Unknown]
  - White blood cell count increased [Unknown]
  - Hypophagia [Unknown]
  - Metastases to bone [Unknown]
  - Inflammation [Unknown]
  - Blood pressure decreased [Unknown]
  - Blood albumin decreased [Unknown]
  - Haemothorax [Unknown]
  - Lymphangiosis carcinomatosa [Unknown]
  - Oxygen saturation decreased [Unknown]
  - Weight increased [Unknown]
  - Pneumonia [Unknown]
  - Computerised tomogram abnormal [Unknown]
  - Cardiac failure [Unknown]
  - Metastases to lung [Unknown]
  - C-reactive protein increased [Unknown]
  - Pyrexia [Unknown]
  - Dyspnoea [Recovering/Resolving]
  - Restlessness [Unknown]

NARRATIVE: CASE EVENT DATE: 2018
